FAERS Safety Report 23684959 (Version 1)
Quarter: 2024Q1

REPORT INFORMATION
  Report Type: Spontaneous
  Country: AU (occurrence: AU)
  Receive Date: 20240328
  Receipt Date: 20240328
  Transmission Date: 20240410
  Serious: Yes (Hospitalization)
  Sender: FDA-Public Use
  Company Number: AU-LUNDBECK-DKLU3075822

PATIENT
  Age: 66 Year
  Sex: Female

DRUGS (6)
  1. LEXAPRO [Suspect]
     Active Substance: ESCITALOPRAM OXALATE
     Indication: Product used for unknown indication
     Dosage: STRENGTH: 20MG/ML, TOOK AN INCREASING DOSE OF 1 DROP INCREASING TO 6 DROPS OVER 27 OCTOBER TO 8 N...
     Route: 048
     Dates: start: 20191027
  2. LEXAPRO [Suspect]
     Active Substance: ESCITALOPRAM OXALATE
     Indication: Product used for unknown indication
     Dosage: STRENGTH: 20MG/ML, TOOK AN INCREASING DOSE OF 1 DROP INCREASING TO 6 DROPS OVER 27 OCTOBER?TO 8 NOVE
     Route: 048
     Dates: end: 20191108
  3. RISPERIDONE [Suspect]
     Active Substance: RISPERIDONE
     Indication: Product used for unknown indication
     Route: 048
     Dates: start: 201912, end: 20191230
  4. VALIUM [Suspect]
     Active Substance: DIAZEPAM
     Indication: Product used for unknown indication
     Route: 065
     Dates: start: 20191004, end: 20191028
  5. MIRTAZAPINE [Suspect]
     Active Substance: MIRTAZAPINE
     Indication: Product used for unknown indication
     Route: 065
  6. TEMAZEPAM [Suspect]
     Active Substance: TEMAZEPAM
     Indication: Product used for unknown indication
     Route: 065
     Dates: start: 20191029, end: 20191129

REACTIONS (20)
  - Abnormal behaviour [Recovered/Resolved]
  - Fat tissue increased [Not Recovered/Not Resolved]
  - Autoscopy [Recovered/Resolved]
  - Agitation [Recovering/Resolving]
  - Restlessness [Recovering/Resolving]
  - Weight decreased [Recovered/Resolved]
  - Irritability [Recovering/Resolving]
  - Hyperthyroidism [Not Recovered/Not Resolved]
  - Dry mouth [Recovered/Resolved]
  - Hypertension [Recovered/Resolved]
  - Weight increased [Not Recovered/Not Resolved]
  - Confusional state [Recovered/Resolved]
  - Constipation [Recovered/Resolved]
  - Insomnia [Recovered/Resolved]
  - Underdose [Unknown]
  - Oedema [Recovered/Resolved]
  - Patient elopement [Recovered/Resolved]
  - Hyponatraemia [Recovered/Resolved]
  - Blood iron decreased [Not Recovered/Not Resolved]
  - Taste disorder [Recovered/Resolved]

NARRATIVE: CASE EVENT DATE: 20191105
